FAERS Safety Report 5699301-9 (Version None)
Quarter: 2008Q2

REPORT INFORMATION
  Report Type: 
  Country: None (occurrence: None)
  Receive Date: 20080404
  Receipt Date: 20080326
  Transmission Date: 20081010
  Serious: No
  Sender: FDA-Public Use
  Company Number: US023108

PATIENT
  Sex: Female

DRUGS (1)
  1. FENTORA [Suspect]
     Indication: BACK PAIN
     Dosage: 300 UG BUCCAL
     Route: 002

REACTIONS (2)
  - MEDICATION ERROR [None]
  - SKIN REACTION [None]
